FAERS Safety Report 14767402 (Version 2)
Quarter: 2018Q2

REPORT INFORMATION
  Report Type: Spontaneous
  Country: GB (occurrence: GB)
  Receive Date: 20180417
  Receipt Date: 20180502
  Transmission Date: 20180711
  Serious: Yes (Hospitalization, Other)
  Sender: FDA-Public Use
  Company Number: GB-HORIZON-PRO-0085-2018

PATIENT
  Sex: Male

DRUGS (8)
  1. CYSTEAMINE BITARTRATE [Suspect]
     Active Substance: CYSTEAMINE BITARTRATE
     Indication: CROHN^S DISEASE
  2. MERCAPTOPURINE. [Suspect]
     Active Substance: MERCAPTOPURINE
     Indication: PRODUCT USED FOR UNKNOWN INDICATION
  3. PREDSOL-N [Suspect]
     Active Substance: NEOMYCIN SULFATE\PREDNISOLONE SODIUM PHOSPHATE
     Indication: CROHN^S DISEASE
  4. AZATHIOPRINE. [Suspect]
     Active Substance: AZATHIOPRINE
     Indication: PRODUCT USED FOR UNKNOWN INDICATION
  5. MESALAZINE [Suspect]
     Active Substance: MESALAMINE
     Indication: CROHN^S DISEASE
  6. PREDSOL [Suspect]
     Active Substance: PREDNISOLONE
     Indication: CROHN^S DISEASE
  7. SULFASALAZINE. [Suspect]
     Active Substance: SULFASALAZINE
     Indication: PRODUCT USED FOR UNKNOWN INDICATION
  8. PREDNISOLONE. [Suspect]
     Active Substance: PREDNISOLONE
     Indication: CROHN^S DISEASE

REACTIONS (8)
  - Laceration [Unknown]
  - Intestinal diaphragm disease [Unknown]
  - Small intestinal obstruction [Unknown]
  - Anaemia [Unknown]
  - Small intestinal stenosis [Unknown]
  - Weight decreased [Unknown]
  - Hypoalbuminaemia [Unknown]
  - Fall [Unknown]
